FAERS Safety Report 18325496 (Version 4)
Quarter: 2020Q4

REPORT INFORMATION
  Report Type: Spontaneous
  Country: US (occurrence: US)
  Receive Date: 20200929
  Receipt Date: 20201104
  Transmission Date: 20210113
  Serious: Yes (Hospitalization)
  Sender: FDA-Public Use
  Company Number: US-CELGENEUS-USA-20200905509

PATIENT
  Age: 62 Year
  Sex: Male
  Weight: 98.52 kg

DRUGS (3)
  1. DURVALUMAB. [Suspect]
     Active Substance: DURVALUMAB
     Indication: SQUAMOUS CELL CARCINOMA OF HEAD AND NECK
     Dosage: 750 MILLIGRAM
     Route: 042
     Dates: start: 20200831
  2. CARBOPLATIN. [Suspect]
     Active Substance: CARBOPLATIN
     Indication: SQUAMOUS CELL CARCINOMA OF HEAD AND NECK
     Dosage: 282 MILLIGRAM
     Route: 042
     Dates: start: 20200831
  3. ABRAXANE [Suspect]
     Active Substance: PACLITAXEL
     Indication: SQUAMOUS CELL CARCINOMA OF HEAD AND NECK
     Dosage: 225 MILLIGRAM
     Route: 042
     Dates: start: 20200831

REACTIONS (6)
  - Skin infection [Unknown]
  - Pericardial effusion [Unknown]
  - Febrile neutropenia [Unknown]
  - Atrial fibrillation [Unknown]
  - Dysphagia [Unknown]
  - Dehydration [Unknown]

NARRATIVE: CASE EVENT DATE: 20200903
